FAERS Safety Report 9426648 (Version 1)
Quarter: 2013Q3

REPORT INFORMATION
  Report Type: Spontaneous
  Country: US (occurrence: US)
  Receive Date: 20130730
  Receipt Date: 20130730
  Transmission Date: 20140515
  Serious: No
  Sender: FDA-Public Use
  Company Number: US-SANOFI-AVENTIS-2013SA055980

PATIENT
  Sex: Female
  Weight: 52.16 kg

DRUGS (4)
  1. AMBIEN [Suspect]
     Indication: INSOMNIA
  2. LUNESTA [Suspect]
     Indication: INSOMNIA
     Route: 048
     Dates: start: 20130429
  3. AMLODIPINE [Concomitant]
  4. LISINOPRIL [Concomitant]

REACTIONS (4)
  - Diarrhoea [Unknown]
  - Middle insomnia [Unknown]
  - Nausea [Unknown]
  - Headache [Unknown]
